FAERS Safety Report 14347173 (Version 1)
Quarter: 2018Q1

REPORT INFORMATION
  Report Type: Spontaneous
  Country: US (occurrence: US)
  Receive Date: 20180103
  Receipt Date: 20180103
  Transmission Date: 20180509
  Serious: No
  Sender: FDA-Public Use
  Company Number: US-PFIZER INC-2017555322

PATIENT
  Age: 65 Year
  Sex: Female
  Weight: 108 kg

DRUGS (3)
  1. LETROZOLE. [Concomitant]
     Active Substance: LETROZOLE
     Indication: BREAST CANCER METASTATIC
     Dosage: 2.5 MG, 1X/DAY
     Route: 048
     Dates: start: 201610
  2. IBRANCE [Suspect]
     Active Substance: PALBOCICLIB
     Indication: BREAST CANCER METASTATIC
     Dosage: 125 MG, CYCLIC (21 DAYS ON 7 DAYS OFF)
     Route: 048
     Dates: start: 201610
  3. XGEVA [Concomitant]
     Active Substance: DENOSUMAB
     Indication: ADJUVANT THERAPY
     Dosage: UNK, SHOT, ONCE A MONTH
     Dates: start: 201610

REACTIONS (3)
  - Alopecia [Not Recovered/Not Resolved]
  - Bone pain [Recovering/Resolving]
  - Fatigue [Recovering/Resolving]

NARRATIVE: CASE EVENT DATE: 201610
